FAERS Safety Report 24686529 (Version 2)
Quarter: 2024Q4

REPORT INFORMATION
  Report Type: Spontaneous
  Country: US (occurrence: US)
  Receive Date: 20241202
  Receipt Date: 20241220
  Transmission Date: 20250115
  Serious: No
  Sender: ALEMBIC
  Company Number: US-ALEMBIC PHARMACUETICALS LIMITED-2024SCAL001674

PATIENT

DRUGS (2)
  1. PREGABALIN [Suspect]
     Active Substance: PREGABALIN
     Indication: Neck pain
     Dosage: 50 MG, BID (ONE IN THE MORNING AND ONE AT NIGHT)
     Route: 048
     Dates: start: 202409, end: 202411
  2. PREGABALIN [Suspect]
     Active Substance: PREGABALIN
     Indication: Arthralgia

REACTIONS (5)
  - Inappropriate schedule of product administration [Unknown]
  - Product substitution issue [Unknown]
  - Therapy cessation [Unknown]
  - Headache [Recovered/Resolved]
  - Somnolence [Recovered/Resolved]

NARRATIVE: CASE EVENT DATE: 20241001
